FAERS Safety Report 6077097-9 (Version None)
Quarter: 2009Q1

REPORT INFORMATION
  Report Type: 
  Country: None (occurrence: None)
  Receive Date: 20090211
  Receipt Date: 20090211
  Transmission Date: 20090719
  Serious: Yes (Disabling)
  Sender: FDA-Public Use
  Company Number: None

PATIENT
  Age: 36 Year
  Sex: Male
  Weight: 86.1834 kg

DRUGS (1)
  1. PAXIL [Suspect]
     Indication: DEPRESSION
     Dosage: 40ML DAILY PO
     Route: 048
     Dates: start: 20070318, end: 20090122

REACTIONS (2)
  - ABNORMAL BEHAVIOUR [None]
  - CONDITION AGGRAVATED [None]
